FAERS Safety Report 15690835 (Version 2)
Quarter: 2019Q1

REPORT INFORMATION
  Report Type: Spontaneous
  Country: US (occurrence: US)
  Receive Date: 20181205
  Receipt Date: 20190206
  Transmission Date: 20190417
  Serious: Yes (Other)
  Sender: FDA-Public Use
  Company Number: US-SA-2018SA326988

PATIENT
  Age: 58 Year
  Sex: Female
  Weight: 114.3 kg

DRUGS (9)
  1. TAXOTERE [Suspect]
     Active Substance: DOCETAXEL
     Indication: BREAST CANCER FEMALE
     Dosage: 200 MG, Q3W
     Route: 042
     Dates: start: 20050314, end: 20050314
  2. EFUDEX [Concomitant]
     Active Substance: FLUOROURACIL
     Dosage: UNK UNK, UNK
     Route: 065
  3. ADRIAMYCIN [Concomitant]
     Active Substance: DOXORUBICIN HYDROCHLORIDE
     Dosage: UNK UNK, UNK
  4. HYDROCHLOROTHIAZIDE. [Concomitant]
     Active Substance: HYDROCHLOROTHIAZIDE
     Indication: GASTROOESOPHAGEAL REFLUX DISEASE
     Dosage: UNK UNK, UNK
     Route: 065
  5. NEOSAR [Concomitant]
     Active Substance: CYCLOPHOSPHAMIDE
     Dosage: UNK UNK, UNK
     Route: 065
  6. FLUOROURACIL. [Concomitant]
     Active Substance: FLUOROURACIL
     Dosage: UNK UNK, UNK
     Route: 065
  7. TAXOTERE [Suspect]
     Active Substance: DOCETAXEL
     Dosage: 200 MG, Q3W
     Route: 042
     Dates: start: 20050523, end: 20050523
  8. DOXORUBICIN [Concomitant]
     Active Substance: DOXORUBICIN
     Dosage: UNK UNK, UNK
     Route: 065
  9. CYCLOPHOSPHAMIDE. [Concomitant]
     Active Substance: CYCLOPHOSPHAMIDE
     Dosage: UNK UNK, UNK

REACTIONS (3)
  - Emotional distress [Unknown]
  - Anxiety [Unknown]
  - Alopecia [Recovering/Resolving]

NARRATIVE: CASE EVENT DATE: 200605
